FAERS Safety Report 6445747-0 (Version None)
Quarter: 2009Q4

REPORT INFORMATION
  Report Type: 
  Country: None (occurrence: None)
  Receive Date: 20091119
  Receipt Date: 20091106
  Transmission Date: 20100525
  Serious: Yes (Other)
  Sender: FDA-Public Use
  Company Number: US-RANBAXY-2009RR-28913

PATIENT
  Age: 38 Year
  Sex: Male

DRUGS (9)
  1. GABAPENTIN [Suspect]
     Indication: HEADACHE
     Dosage: 2400 MG, UNK
  2. GABAPENTIN [Suspect]
     Indication: ANXIETY
     Dosage: 4800 MG, UNK
  3. GABAPENTIN [Suspect]
     Indication: AFFECTIVE DISORDER
  4. BUPROPION HCL [Concomitant]
     Indication: DEPRESSION
     Dosage: 200 MG, BID
  5. BUPROPION HCL [Concomitant]
     Indication: ANXIETY
  6. BUSPIRONE HCL [Concomitant]
     Indication: DEPRESSION
     Dosage: 20 MG, TID
  7. BUSPIRONE HCL [Concomitant]
     Indication: ANXIETY
  8. ATENOLOL [Concomitant]
     Dosage: 100 MG, UNK
  9. ZONISAMIDE [Concomitant]
     Indication: MIGRAINE
     Dosage: 300 MG, UNK

REACTIONS (3)
  - DELIRIUM [None]
  - DEPENDENCE [None]
  - WITHDRAWAL SYNDROME [None]
